FAERS Safety Report 4997766-9 (Version None)
Quarter: 2006Q2

REPORT INFORMATION
  Report Type: 
  Country: None (occurrence: None)
  Receive Date: 20060510
  Receipt Date: 20060504
  Transmission Date: 20061013
  Serious: Yes (Death, Hospitalization, Disabling)
  Sender: FDA-Public Use
  Company Number: PHBS2006ES06742

PATIENT
  Age: 75 Year
  Sex: Male

DRUGS (2)
  1. AREDIA [Suspect]
     Indication: MULTIPLE MYELOMA
     Route: 065
  2. ZOMETA [Suspect]
     Indication: MULTIPLE MYELOMA
     Dosage: UNK, UNK
     Route: 065
     Dates: start: 20030101, end: 20040601

REACTIONS (6)
  - DEATH [None]
  - DISEASE PROGRESSION [None]
  - FISTULA [None]
  - NODULE [None]
  - PAIN IN JAW [None]
  - TOOTH EXTRACTION [None]
